FAERS Safety Report 19030468 (Version 1)
Quarter: 2021Q1

REPORT INFORMATION
  Report Type: Spontaneous
  Country: US (occurrence: US)
  Receive Date: 20210319
  Receipt Date: 20210319
  Transmission Date: 20210420
  Serious: No
  Sender: FDA-Public Use
  Company Number: US-BAUSCH-BL-2021-008141

PATIENT
  Sex: Female

DRUGS (3)
  1. ELIDEL [Suspect]
     Active Substance: PIMECROLIMUS
     Indication: WOUND HAEMORRHAGE
  2. ELIDEL [Suspect]
     Active Substance: PIMECROLIMUS
     Indication: PRODUCT USE IN UNAPPROVED INDICATION
  3. ELIDEL [Suspect]
     Active Substance: PIMECROLIMUS
     Indication: RASH
     Dosage: 30 G
     Route: 061
     Dates: end: 202102

REACTIONS (4)
  - Abdominal discomfort [Unknown]
  - Product use in unapproved indication [Unknown]
  - Expired product administered [Unknown]
  - Headache [Unknown]

NARRATIVE: CASE EVENT DATE: 202102
